FAERS Safety Report 24668669 (Version 1)
Quarter: 2024Q4

REPORT INFORMATION
  Report Type: Spontaneous
  Country: JP (occurrence: JP)
  Receive Date: 20241127
  Receipt Date: 20241127
  Transmission Date: 20250115
  Serious: Yes (Death, Other)
  Sender: ABBVIE
  Company Number: JP-ABBVIE-6022718

PATIENT

DRUGS (1)
  1. VENCLEXTA [Suspect]
     Active Substance: VENETOCLAX
     Indication: Acute myeloid leukaemia
     Dosage: FORM STRENGTH: 100 MILLIGRAM
     Route: 048

REACTIONS (8)
  - Graft versus host disease [Fatal]
  - Acute myeloid leukaemia [Fatal]
  - Acute myeloid leukaemia recurrent [Unknown]
  - Acute kidney injury [Unknown]
  - Infection [Unknown]
  - Drug ineffective [Unknown]
  - Full blood count decreased [Unknown]
  - Off label use [Unknown]
